FAERS Safety Report 5876850-1 (Version None)
Quarter: 2008Q3

REPORT INFORMATION
  Report Type: 
  Country: None (occurrence: None)
  Receive Date: 20080910
  Receipt Date: 20080905
  Transmission Date: 20090109
  Serious: Yes (Hospitalization)
  Sender: FDA-Public Use
  Company Number: US-BRISTOL-MYERS SQUIBB COMPANY-14325799

PATIENT
  Age: 55 Year
  Sex: Male
  Weight: 60 kg

DRUGS (2)
  1. CISPLATIN [Suspect]
     Indication: HEAD AND NECK CANCER
     Dosage: 100MG/M2=190MG IVPB IN 1000ML NS OVER 2HRS ON DAY 1
     Route: 042
     Dates: start: 20080722, end: 20080722
  2. RADIATION THERAPY [Suspect]
     Indication: HEAD AND NECK CANCER
     Dosage: 1 DOSAGE FORM = GY; NO. OF FRACTION=35; NO. OF ELAPSED DAYS: 56

REACTIONS (3)
  - OROPHARYNGEAL PAIN [None]
  - STOMATITIS [None]
  - WEIGHT DECREASED [None]
